FAERS Safety Report 5803047-3 (Version None)
Quarter: 2008Q3

REPORT INFORMATION
  Report Type: 
  Country: None (occurrence: None)
  Receive Date: 20080708
  Receipt Date: 20080630
  Transmission Date: 20090109
  Serious: Yes (Other)
  Sender: FDA-Public Use
  Company Number: JP-JNJFOC-20080605902

PATIENT
  Age: 62 Year
  Sex: Female

DRUGS (5)
  1. RISPERDAL [Suspect]
     Indication: DRUG USE FOR UNKNOWN INDICATION
     Route: 048
  2. LEVOTOMIN [Concomitant]
     Route: 048
  3. AMOBAN [Concomitant]
     Route: 048
  4. AKINETON [Concomitant]
     Route: 048
  5. NITRAZEPAM [Concomitant]
     Route: 048

REACTIONS (1)
  - HYPERACUSIS [None]
